FAERS Safety Report 25377717 (Version 6)
Quarter: 2025Q3

REPORT INFORMATION
  Report Type: Spontaneous
  Country: JP (occurrence: JP)
  Receive Date: 20250530
  Receipt Date: 20250818
  Transmission Date: 20251020
  Serious: Yes (Death, Hospitalization)
  Sender: AMGEN
  Company Number: JP-AMGEN-JPNSP2025103843

PATIENT
  Age: 57 Year
  Sex: Female
  Weight: 65 kg

DRUGS (3)
  1. IMDELLTRA [Suspect]
     Active Substance: TARLATAMAB-DLLE
     Indication: Small cell lung cancer
     Route: 040
     Dates: start: 20250522, end: 202505
  2. FENTANYL [Concomitant]
     Active Substance: FENTANYL
     Indication: Cancer pain
     Dates: start: 20250414
  3. DECADRON [Concomitant]
     Active Substance: DEXAMETHASONE
     Route: 040
     Dates: start: 20250522

REACTIONS (3)
  - Acute kidney injury [Not Recovered/Not Resolved]
  - Cytokine release syndrome [Fatal]
  - Multiple organ dysfunction syndrome [Fatal]

NARRATIVE: CASE EVENT DATE: 20250501
